FAERS Safety Report 13552554 (Version 4)
Quarter: 2017Q4

REPORT INFORMATION
  Report Type: Report from Study
  Country: CZ (occurrence: CZ)
  Receive Date: 20170517
  Receipt Date: 20171115
  Transmission Date: 20180320
  Serious: Yes (Hospitalization)
  Sender: FDA-Public Use
  Company Number: CZ-ROCHE-1934378

PATIENT
  Age: 51 Year
  Sex: Male

DRUGS (10)
  1. VENETOCLAX. [Suspect]
     Active Substance: VENETOCLAX
     Dosage: MOST RECENT DOSE ON 20/FEB/2017
     Route: 048
     Dates: start: 20150402, end: 20170220
  2. COTRIMOXAZOLE [Concomitant]
     Active Substance: SULFAMETHOXAZOLE\TRIMETHOPRIM
     Indication: PROPHYLAXIS
     Route: 065
     Dates: start: 20141218
  3. VENETOCLAX. [Suspect]
     Active Substance: VENETOCLAX
     Route: 048
     Dates: start: 20150326, end: 20150401
  4. VALACICLOVIR [Concomitant]
     Active Substance: VALACYCLOVIR HYDROCHLORIDE
     Indication: HERPES VIRUS INFECTION
     Route: 065
     Dates: start: 20150904
  5. VENETOCLAX. [Suspect]
     Active Substance: VENETOCLAX
     Route: 048
     Dates: start: 20150319, end: 20150325
  6. RITUXIMAB. [Suspect]
     Active Substance: RITUXIMAB
     Indication: CHRONIC LYMPHOCYTIC LEUKAEMIA
     Route: 042
     Dates: start: 20150409, end: 20150409
  7. VENETOCLAX. [Suspect]
     Active Substance: VENETOCLAX
     Route: 048
     Dates: start: 20150305, end: 20150314
  8. VENETOCLAX. [Suspect]
     Active Substance: VENETOCLAX
     Route: 048
     Dates: start: 20170409
  9. RITUXIMAB. [Suspect]
     Active Substance: RITUXIMAB
     Route: 042
     Dates: start: 20150507
  10. VENETOCLAX. [Suspect]
     Active Substance: VENETOCLAX
     Indication: CHRONIC LYMPHOCYTIC LEUKAEMIA
     Route: 048
     Dates: start: 20150114, end: 20150304

REACTIONS (1)
  - Herpes simplex otitis externa [Recovered/Resolved]

NARRATIVE: CASE EVENT DATE: 20170306
